FAERS Safety Report 8271675-4 (Version None)
Quarter: 2012Q2

REPORT INFORMATION
  Report Type: 
  Country: None (occurrence: None)
  Receive Date: 20120410
  Receipt Date: 20120402
  Transmission Date: 20120825
  Serious: Yes (Hospitalization)
  Sender: FDA-Public Use
  Company Number: US-VERTEX PHARMACEUTICALS INC.-AE-2012-000205

PATIENT
  Sex: Male

DRUGS (3)
  1. INCIVEK [Suspect]
     Indication: HEPATITIS C
  2. INTERFERON [Concomitant]
  3. SYNTHROID [Concomitant]

REACTIONS (4)
  - STEVENS-JOHNSON SYNDROME [None]
  - SEPSIS [None]
  - ANAEMIA [None]
  - OSTEOMYELITIS [None]
